FAERS Safety Report 4923757-X (Version None)
Quarter: 2006Q1

REPORT INFORMATION
  Report Type: 
  Country: None (occurrence: None)
  Receive Date: 20060224
  Receipt Date: 20060224
  Transmission Date: 20060701
  Serious: Yes (Disabling, Other)
  Sender: FDA-Public Use
  Company Number: None

PATIENT
  Age: 80 Year
  Sex: Female
  Weight: 54.4316 kg

DRUGS (1)
  1. SINEMET [Suspect]
     Indication: PARKINSON'S DISEASE
     Dosage: 25/100 Q 2 HOURS PO
     Route: 048
     Dates: start: 20010101, end: 20020101

REACTIONS (2)
  - DRUG INEFFECTIVE [None]
  - PHARMACEUTICAL PRODUCT COMPLAINT [None]
